FAERS Safety Report 5355705-5 (Version None)
Quarter: 2007Q2

REPORT INFORMATION
  Report Type: 
  Country: None (occurrence: None)
  Receive Date: 20070613
  Receipt Date: 20070605
  Transmission Date: 20071010
  Serious: Yes (Hospitalization)
  Sender: FDA-Public Use
  Company Number: US-ASTRAZENECA-2007UW11151

PATIENT
  Age: 81 Year
  Sex: Female

DRUGS (17)
  1. SEROQUEL [Suspect]
     Indication: BIPOLAR II DISORDER
     Route: 048
     Dates: start: 20070301, end: 20070419
  2. DIGOXIN [Concomitant]
     Indication: CARDIAC FAILURE CONGESTIVE
  3. TOPROL-XL [Concomitant]
     Route: 048
  4. ASPIRIN [Concomitant]
  5. DIOVAN [Concomitant]
  6. ACIPHEX [Concomitant]
  7. SYNTHROID [Concomitant]
  8. LAMICTAL [Concomitant]
  9. ADVICOR [Concomitant]
  10. REMERON [Concomitant]
  11. REMERON [Concomitant]
  12. CELEBREX [Concomitant]
  13. IRON [Concomitant]
  14. FOSAMAX [Concomitant]
  15. CALCIUM CHLORIDE [Concomitant]
  16. MULTI-VITAMIN [Concomitant]
  17. LESCOL [Concomitant]

REACTIONS (9)
  - ARTHRALGIA [None]
  - ASTHENIA [None]
  - DIARRHOEA [None]
  - HAEMATOCRIT DECREASED [None]
  - HAEMOGLOBIN DECREASED [None]
  - HYPONATRAEMIA [None]
  - JOINT SWELLING [None]
  - OEDEMA PERIPHERAL [None]
  - OTITIS MEDIA [None]
